FAERS Safety Report 9948364 (Version 2)
Quarter: 2014Q2

REPORT INFORMATION
  Report Type: Spontaneous
  Country: IT (occurrence: IT)
  Receive Date: 20140303
  Receipt Date: 20140429
  Transmission Date: 20141212
  Serious: Yes (Hospitalization)
  Sender: FDA-Public Use
  Company Number: IT-MYLANLABS-2014S1003896

PATIENT
  Age: 87 Year
  Sex: Male

DRUGS (10)
  1. CARVEDILOL [Suspect]
     Indication: PRODUCT USED FOR UNKNOWN INDICATION
     Dosage: 12.5 MG DAILY
     Route: 048
     Dates: start: 20060101, end: 20140205
  2. MODURETIC [Suspect]
     Indication: PRODUCT USED FOR UNKNOWN INDICATION
     Dosage: 1 DF DAILY
     Route: 048
     Dates: start: 20131001, end: 20140205
  3. NORVASC [Concomitant]
     Indication: PRODUCT USED FOR UNKNOWN INDICATION
     Dosage: 1 DF
     Route: 048
  4. CARDIOASPIRIN [Concomitant]
     Indication: PRODUCT USED FOR UNKNOWN INDICATION
  5. AVODART [Concomitant]
     Indication: PRODUCT USED FOR UNKNOWN INDICATION
  6. LESCOL [Concomitant]
     Indication: PRODUCT USED FOR UNKNOWN INDICATION
  7. TERAPROST [Concomitant]
     Indication: PRODUCT USED FOR UNKNOWN INDICATION
  8. REPAGLINIDE [Concomitant]
     Indication: PRODUCT USED FOR UNKNOWN INDICATION
     Dosage: 3 DF
     Route: 048
  9. METFORMIN [Concomitant]
     Indication: PRODUCT USED FOR UNKNOWN INDICATION
     Dosage: 500 MG
     Route: 048
  10. ALLOPURINOL [Concomitant]
     Indication: PRODUCT USED FOR UNKNOWN INDICATION

REACTIONS (2)
  - Hyperkalaemia [Recovered/Resolved]
  - Sinus bradycardia [Recovered/Resolved]
